FAERS Safety Report 9185041 (Version 2)
Quarter: 2013Q1

REPORT INFORMATION
  Report Type: Spontaneous
  Country: GB (occurrence: GB)
  Receive Date: 20130325
  Receipt Date: 20130328
  Transmission Date: 20140127
  Serious: Yes (Hospitalization, Other)
  Sender: FDA-Public Use
  Company Number: GB-TEVA-391611ISR

PATIENT
  Age: 77 Year
  Sex: Male

DRUGS (12)
  1. WARFARIN [Suspect]
     Indication: THROMBOSIS PROPHYLAXIS
     Route: 065
  2. LENALIDOMIDE [Suspect]
     Indication: PLASMA CELL MYELOMA
     Dosage: 25MG DAILY, DAYS 1-21
     Route: 065
     Dates: start: 201011, end: 201102
  3. DEXAMETHASONE [Interacting]
     Indication: PLASMA CELL MYELOMA
     Dosage: 20MG DAILY, DAYS 1-4, 9-12, 17-20
     Route: 065
     Dates: start: 201011, end: 201102
  4. CLOPIDOGREL [Concomitant]
     Indication: ANTIPLATELET THERAPY
     Dosage: 75MG DAILY
     Route: 065
  5. ASPIRIN [Concomitant]
     Indication: ANTIPLATELET THERAPY
     Dosage: 75MG DAILY
     Route: 065
  6. ISOSORBIDE MONONITRATE [Concomitant]
     Dosage: 60MG DAILY
     Route: 065
  7. ADIZEM SR [Concomitant]
     Route: 065
  8. CLODRONIC ACID [Concomitant]
     Dosage: 1.6G DAILY
     Route: 065
  9. OMEPRAZOLE [Concomitant]
     Dosage: 40MG DAILY
     Route: 065
  10. ATORVASTATIN [Concomitant]
     Dosage: 80MG DAILY
     Route: 065
  11. NITROGLYCERIN [Concomitant]
     Indication: CHEST PAIN
     Dosage: 1-2 PUFFS AS REQUIRED
     Route: 065
  12. PARACETAMOL [Concomitant]
     Dosage: 1G AS REQUIRED
     Route: 065

REACTIONS (4)
  - International normalised ratio decreased [Unknown]
  - Drug interaction [Unknown]
  - Acute myocardial infarction [Unknown]
  - Pulmonary embolism [Unknown]
